FAERS Safety Report 15490275 (Version 1)
Quarter: 2018Q4

REPORT INFORMATION
  Report Type: Spontaneous
  Country: GB (occurrence: GB)
  Receive Date: 20181011
  Receipt Date: 20181011
  Transmission Date: 20190205
  Serious: No
  Sender: FDA-Public Use
  Company Number: GB-MARKSANS PHARMA LIMITED-2055946

PATIENT
  Sex: Male

DRUGS (1)
  1. METFORMIN MOLECULE FROM UK MARKET [Suspect]
     Active Substance: METFORMIN HYDROCHLORIDE
     Route: 048

REACTIONS (1)
  - Spermatozoa progressive motility decreased [None]
